FAERS Safety Report 4725717-0 (Version None)
Quarter: 2005Q3

REPORT INFORMATION
  Report Type: 
  Country: None (occurrence: None)
  Receive Date: 20050722
  Receipt Date: 20050722
  Transmission Date: 20060218
  Serious: Yes (Other)
  Sender: FDA-Public Use
  Company Number: None

PATIENT
  Sex: Female
  Weight: 66.6788 kg

DRUGS (1)
  1. LEXAPRO [Suspect]
     Indication: HEADACHE
     Dosage: 10MG 1X/DAY ORAL
     Route: 048
     Dates: start: 20050319, end: 20050701

REACTIONS (1)
  - RESTLESS LEGS SYNDROME [None]
